FAERS Safety Report 5627432-8 (Version None)
Quarter: 2008Q1

REPORT INFORMATION
  Report Type: 
  Country: None (occurrence: None)
  Receive Date: 20080214
  Receipt Date: 20080214
  Transmission Date: 20080703
  Serious: Yes (Other)
  Sender: FDA-Public Use
  Company Number: None

PATIENT
  Age: 30 Year
  Sex: Female
  Weight: 67.586 kg

DRUGS (2)
  1. ZYRTEC [Suspect]
     Indication: HYPERSENSITIVITY
     Dosage: 1; 1 A DAY
     Dates: start: 20030101, end: 20030212
  2. ZYRTEC-D 12 HOUR [Suspect]
     Indication: HYPERSENSITIVITY
     Dosage: 1; 2 A DAY
     Dates: start: 20080210, end: 20080212

REACTIONS (2)
  - PRURITUS [None]
  - URTICARIA [None]
